FAERS Safety Report 17222782 (Version 1)
Quarter: 2020Q1

REPORT INFORMATION
  Report Type: Spontaneous
  Country: KP (occurrence: KP)
  Receive Date: 20200102
  Receipt Date: 20200102
  Transmission Date: 20200409
  Serious: Yes (Disabling, Other)
  Sender: FDA-Public Use
  Company Number: KP-MACLEODS PHARMACEUTICALS US LTD-MAC2019024619

PATIENT

DRUGS (1)
  1. TRIAMCINOLONE [Suspect]
     Active Substance: TRIAMCINOLONE
     Indication: OSTEOARTHRITIS
     Dosage: UNK, INTRA-ARTICULAR INJECTION OF BOTH KNEES
     Route: 014

REACTIONS (1)
  - Osteonecrosis [Recovered/Resolved]
